FAERS Safety Report 22095208 (Version 1)
Quarter: 2023Q1

REPORT INFORMATION
  Report Type: Spontaneous
  Country: CN (occurrence: CN)
  Receive Date: 20230314
  Receipt Date: 20230314
  Transmission Date: 20230418
  Serious: Yes (Hospitalization, Other)
  Sender: FDA-Public Use
  Company Number: CN-ELI_LILLY_AND_COMPANY-CN202303001197

PATIENT
  Age: 19 Year
  Weight: 43 kg

DRUGS (2)
  1. OLANZAPINE [Suspect]
     Active Substance: OLANZAPINE
     Indication: Depression
     Dosage: 5 MG, DAILY
     Route: 065
     Dates: start: 20230110, end: 20230206
  2. VENLAFAXINE [Suspect]
     Active Substance: VENLAFAXINE HYDROCHLORIDE
     Indication: Depression
     Dosage: 75 MG, DAILY
     Route: 065
     Dates: start: 20230110, end: 20230206

REACTIONS (2)
  - Myocardial injury [Recovered/Resolved]
  - Depression [Unknown]
